FAERS Safety Report 4786101-7 (Version None)
Quarter: 2005Q4

REPORT INFORMATION
  Report Type: 
  Country: None (occurrence: None)
  Receive Date: 20051003
  Receipt Date: 20050824
  Transmission Date: 20060501
  Serious: Yes (Hospitalization)
  Sender: FDA-Public Use
  Company Number: DE-AMGEN-UK144768

PATIENT
  Sex: Female
  Weight: 80 kg

DRUGS (5)
  1. NEULASTA [Suspect]
     Indication: CHEMOTHERAPY
     Route: 058
     Dates: start: 20050805, end: 20050905
  2. DOCETAXEL [Concomitant]
     Route: 042
     Dates: start: 20050805, end: 20050826
  3. DOXORUBICIN HCL [Concomitant]
     Route: 042
     Dates: start: 20050805, end: 20050826
  4. CYCLOPHOSPHAMIDE [Concomitant]
     Route: 042
     Dates: start: 20050805, end: 20050826
  5. UROMITEXAN [Concomitant]
     Route: 042
     Dates: start: 20050805, end: 20050826

REACTIONS (3)
  - DIPLOPIA [None]
  - FEBRILE NEUTROPENIA [None]
  - NO THERAPEUTIC RESPONSE [None]
